FAERS Safety Report 11858279 (Version 1)
Quarter: 2015Q4

REPORT INFORMATION
  Report Type: Spontaneous
  Country: SE (occurrence: SE)
  Receive Date: 20151222
  Receipt Date: 20151222
  Transmission Date: 20160305
  Serious: Yes (Other)
  Sender: FDA-Public Use
  Company Number: SE-GLAXOSMITHKLINE-SE2015178494

PATIENT
  Age: 49 Year
  Sex: Female

DRUGS (3)
  1. FLOXACILLIN SODIUM [Interacting]
     Active Substance: FLUCLOXACILLIN SODIUM ANHYDROUS
     Indication: WOUND INFECTION
     Dosage: 1 G, TID
     Dates: start: 20151127, end: 20151206
  2. LAMICTAL [Suspect]
     Active Substance: LAMOTRIGINE
     Indication: EPILEPSY
  3. TRIMONIL RETARD [Interacting]
     Active Substance: CARBAMAZEPINE
     Indication: EPILEPSY

REACTIONS (3)
  - Dysarthria [Recovered/Resolved]
  - Drug interaction [Recovered/Resolved]
  - Dizziness [Recovered/Resolved]

NARRATIVE: CASE EVENT DATE: 20151204
